FAERS Safety Report 25936583 (Version 1)
Quarter: 2025Q4

REPORT INFORMATION
  Report Type: Spontaneous
  Country: US (occurrence: None)
  Receive Date: 20251017
  Receipt Date: 20251017
  Transmission Date: 20260118
  Serious: Yes (Hospitalization, Disabling)
  Sender: FDA-CTU
  Company Number: None

PATIENT
  Age: 85 Year
  Sex: Male
  Weight: 92.25 kg

DRUGS (6)
  1. ELIQUIS [Suspect]
     Active Substance: APIXABAN
     Indication: Thrombosis prophylaxis
     Dates: start: 20200505, end: 20250528
  2. SERTRALINE [Concomitant]
     Active Substance: SERTRALINE HYDROCHLORIDE
  3. LEVOTHYROXINE [Concomitant]
     Active Substance: LEVOTHYROXINE
  4. UNSPECIFIED INGREDIENT [Concomitant]
     Active Substance: UNSPECIFIED INGREDIENT
  5. P [Concomitant]
  6. one-a-day vitamins [Concomitant]

REACTIONS (13)
  - Pain [None]
  - Gait disturbance [None]
  - Pain in extremity [None]
  - Back pain [None]
  - Gait inability [None]
  - Haematoma muscle [None]
  - Hypoaesthesia [None]
  - Muscular weakness [None]
  - Haemorrhagic disorder [None]
  - Hip arthroplasty [None]
  - Hernia repair [None]
  - Groin pain [None]
  - Aspiration bursa [None]

NARRATIVE: CASE EVENT DATE: 20250528
